FAERS Safety Report 4661025-4 (Version None)
Quarter: 2005Q2

REPORT INFORMATION
  Report Type: 
  Country: None (occurrence: None)
  Receive Date: 20050511
  Receipt Date: 20050504
  Transmission Date: 20051028
  Serious: Yes (Other)
  Sender: FDA-Public Use
  Company Number: 2005057590

PATIENT
  Age: 81 Year
  Sex: Female
  Weight: 62.1428 kg

DRUGS (8)
  1. LIPITOR [Suspect]
     Indication: BLOOD CHOLESTEROL INCREASED
     Dosage: 10 MG (10 MG, 1 IN 1 D), ORAL
     Route: 048
     Dates: start: 19940101, end: 20030603
  2. BEXTRA [Suspect]
     Indication: PAIN IN EXTREMITY
     Dosage: 10 MG (10 MG, 1 IN 1 D),  ORAL
     Route: 048
     Dates: start: 20050325, end: 20050406
  3. ATENOLOL [Concomitant]
  4. VALSARTAN [Concomitant]
  5. AMLODIPINE BESYLATE [Concomitant]
  6. ASPIRIN [Concomitant]
  7. FUROSEMIDE [Concomitant]
  8. POTASSIUM CHLORIDE [Concomitant]

REACTIONS (6)
  - CARDIAC DISORDER [None]
  - DIARRHOEA [None]
  - FEELING ABNORMAL [None]
  - MUSCLE SPASMS [None]
  - RECTAL HAEMORRHAGE [None]
  - SCIATICA [None]
